FAERS Safety Report 9775423 (Version 1)
Quarter: 2013Q4

REPORT INFORMATION
  Report Type: Spontaneous
  Country: NO (occurrence: None)
  Receive Date: 20131218
  Receipt Date: 20131218
  Transmission Date: 20140711
  Serious: Yes (Other)
  Sender: FDA-Public Use
  Company Number: FK201305314

PATIENT
  Age: 56 Year
  Sex: Male

DRUGS (1)
  1. CYTARABINE [Suspect]
     Indication: PRODUCT USED FOR UNKNOWN INDICATION
     Dosage: INTRAVENOUS (NOT OTHERWISE SPECIFIED)
     Route: 042
     Dates: start: 20121119, end: 201311

REACTIONS (4)
  - Asthenia [None]
  - Nervous system disorder [None]
  - Urinary retention [None]
  - Dysarthria [None]
